FAERS Safety Report 6590529-2 (Version None)
Quarter: 2010Q1

REPORT INFORMATION
  Report Type: 
  Country: None (occurrence: None)
  Receive Date: 20100219
  Receipt Date: 20100216
  Transmission Date: 20100710
  Serious: Yes (Hospitalization)
  Sender: FDA-Public Use
  Company Number: ES-ROCHE-685630

PATIENT

DRUGS (3)
  1. CAPECITABINE [Suspect]
     Indication: BREAST CANCER
     Dosage: LAST DOSE PRIOR TO SAE:07 FEBRUARY 2000.
     Route: 065
     Dates: start: 20100125
  2. POLARAMINE [Concomitant]
     Dates: start: 20100208
  3. CLARAL [Concomitant]
     Dates: start: 20100208

REACTIONS (4)
  - DIARRHOEA [None]
  - FEBRILE NEUTROPENIA [None]
  - MUCOSAL INFLAMMATION [None]
  - THROMBOCYTOPENIA [None]
